FAERS Safety Report 7379960-5 (Version None)
Quarter: 2011Q1

REPORT INFORMATION
  Report Type: 
  Country: None (occurrence: None)
  Receive Date: 20110329
  Receipt Date: 20110317
  Transmission Date: 20110831
  Serious: Yes (Other)
  Sender: FDA-Public Use
  Company Number: DE-SANOFI-AVENTIS-2011SA016073

PATIENT
  Age: 85 Year
  Sex: Female

DRUGS (2)
  1. MARCUMAR [Concomitant]
     Route: 065
  2. MULTAQ [Suspect]
     Route: 065

REACTIONS (3)
  - ATRIAL FIBRILLATION [None]
  - BRADYCARDIA [None]
  - CONDUCTION DISORDER [None]
